FAERS Safety Report 7819557-3 (Version None)
Quarter: 2011Q4

REPORT INFORMATION
  Report Type: 
  Country: None (occurrence: None)
  Receive Date: 20111013
  Receipt Date: 20111005
  Transmission Date: 20120403
  Serious: Yes (Hospitalization)
  Sender: FDA-Public Use
  Company Number: 1000024462

PATIENT
  Sex: Female

DRUGS (2)
  1. VIIBRYD [Suspect]
     Dosage: 10 MG (20 MG, 1IN 1 D),ORAL, 20 MG (20 MG, 1IN 1 D),ORAL
     Route: 048
  2. VIIBRYD [Suspect]
     Dosage: 40 MG (20 MG, 1 IN 1 D),ORAL; 20 MG (20 MG, 1IN 1 D),ORAL
     Route: 048

REACTIONS (1)
  - SEROTONIN SYNDROME [None]
